FAERS Safety Report 9859814 (Version 2)
Quarter: 2014Q1

REPORT INFORMATION
  Report Type: Report from Study
  Country: JP (occurrence: JP)
  Receive Date: 20140131
  Receipt Date: 20140131
  Transmission Date: 20141002
  Serious: Yes (Death)
  Sender: FDA-Public Use
  Company Number: JP-TAKEDA-TCI2013A01039

PATIENT
  Age: 82 Year
  Sex: Female

DRUGS (5)
  1. ALOGLIPTIN [Suspect]
     Indication: TYPE 2 DIABETES MELLITUS
     Dosage: 6.25 MG, QD
     Route: 048
     Dates: start: 20111206, end: 20120315
  2. ACTOS [Concomitant]
     Indication: TYPE 2 DIABETES MELLITUS
     Dosage: 15 MG, QD
     Route: 048
     Dates: end: 20120315
  3. AMARYL [Concomitant]
     Indication: TYPE 2 DIABETES MELLITUS
     Dosage: 0.5 MG, QD
     Route: 048
     Dates: end: 20120315
  4. CONIEL [Concomitant]
     Dosage: 8 MG, BID
     Route: 048
     Dates: end: 20120315
  5. D ALFA [Concomitant]
     Dosage: 0.5 ?G, BID
     Route: 048
     Dates: end: 20120315

REACTIONS (1)
  - Pneumonia [Fatal]
